FAERS Safety Report 5922495-4 (Version None)
Quarter: 2008Q4

REPORT INFORMATION
  Report Type: 
  Country: None (occurrence: None)
  Receive Date: 20081017
  Receipt Date: 20081008
  Transmission Date: 20090506
  Serious: Yes (Other)
  Sender: FDA-Public Use
  Company Number: PHHY2008GB24446

PATIENT

DRUGS (1)
  1. CYCLOSPORINE [Suspect]
     Dosage: UNK
     Dates: end: 20070101

REACTIONS (2)
  - EYE DISORDER [None]
  - PHOTOPSIA [None]
